FAERS Safety Report 6426130-0 (Version None)
Quarter: 2009Q4

REPORT INFORMATION
  Report Type: 
  Country: None (occurrence: None)
  Receive Date: 20091023
  Receipt Date: 20091007
  Transmission Date: 20100525
  Serious: Yes (Hospitalization)
  Sender: FDA-Public Use
  Company Number: F03200900091

PATIENT
  Age: 59 Year
  Sex: Male

DRUGS (12)
  1. FLUDARABINE PHOSPHATE [Suspect]
     Indication: CHRONIC LYMPHOCYTIC LEUKAEMIA
     Dosage: 80 MG QD, ORAL
     Route: 048
     Dates: start: 20090519, end: 20090616
  2. CYCLOPHOSPHAMIDE [Suspect]
     Indication: CHRONIC LYMPHOCYTIC LEUKAEMIA
     Dosage: 500 MG QD, ORAL
     Route: 048
     Dates: start: 20090519, end: 20090616
  3. ALEMTUZUMAB - UNKNOWN - UNIT DOSE: UNKNOWN [Suspect]
     Indication: CHRONIC LYMPHOCYTIC LEUKAEMIA
  4. ASCAL (ACETYLSALICYLATE CALCIUM) [Concomitant]
  5. LERDIP (LERCANIDIPINE HYDROCHLORIDE) [Concomitant]
  6. BISOPROLOL FUMARATE [Concomitant]
  7. SIMVASTAIN (SIMVASTATIN) [Concomitant]
  8. PERIDOPRIL (PERIDOPRIL) [Concomitant]
  9. METFORMIN HCL [Concomitant]
  10. GLIPIZIDE [Concomitant]
  11. COVERSYL PLUS [Concomitant]
  12. COTRIM [Concomitant]

REACTIONS (5)
  - ANGINA UNSTABLE [None]
  - CORONARY ARTERY DISEASE [None]
  - HAEMOGLOBIN DECREASED [None]
  - HAEMOLYSIS [None]
  - HAPTOGLOBIN DECREASED [None]
